FAERS Safety Report 20573935 (Version 1)
Quarter: 2022Q1

REPORT INFORMATION
  Report Type: Spontaneous
  Country: US (occurrence: US)
  Receive Date: 20220309
  Receipt Date: 20220309
  Transmission Date: 20220423
  Serious: No
  Sender: FDA-Public Use
  Company Number: US-PFIZER INC-202100930585

PATIENT
  Age: 70 Year
  Sex: Male
  Weight: 112.47 kg

DRUGS (1)
  1. XELJANZ [Suspect]
     Active Substance: TOFACITINIB CITRATE
     Indication: Psoriasis
     Dosage: 5 MG, DAILY
     Route: 048
     Dates: start: 202004

REACTIONS (1)
  - Herpes zoster [Unknown]
